FAERS Safety Report 8144193-1 (Version None)
Quarter: 2012Q1

REPORT INFORMATION
  Report Type: 
  Country: None (occurrence: None)
  Receive Date: 20120217
  Receipt Date: 20120207
  Transmission Date: 20120608
  Serious: Yes (Other)
  Sender: FDA-Public Use
  Company Number: IL-MILLENNIUM PHARMACEUTICALS, INC.-2011-01813

PATIENT

DRUGS (1)
  1. VELCADE [Suspect]
     Indication: MULTIPLE MYELOMA
     Route: 042

REACTIONS (2)
  - OESOPHAGITIS [None]
  - HERPES VIRUS INFECTION [None]
